FAERS Safety Report 4278887-5 (Version None)
Quarter: 2004Q1

REPORT INFORMATION
  Report Type: 
  Country: None (occurrence: None)
  Receive Date: 20040122
  Receipt Date: 20040122
  Transmission Date: 20041129
  Serious: Yes (Life-Threatening, Hospitalization)
  Sender: FDA-Public Use
  Company Number: None

PATIENT
  Age: 75 Year
  Sex: Male
  Weight: 77.1115 kg

DRUGS (2)
  1. CEPHALEXIN [Suspect]
     Indication: LIMB INJURY
     Dates: start: 20030731, end: 20030731
  2. TETANUS TOXOID [Suspect]
     Dates: start: 20030731, end: 20030731

REACTIONS (1)
  - ANAPHYLACTIC REACTION [None]
